FAERS Safety Report 11220384 (Version 1)
Quarter: 2015Q2

REPORT INFORMATION
  Report Type: Spontaneous
  Country: US (occurrence: None)
  Receive Date: 20150625
  Receipt Date: 20150625
  Transmission Date: 20150821
  Serious: No
  Sender: FDA-Public Use
  Company Number: None

PATIENT

DRUGS (2)
  1. CEFDINIR CEFDINIR [Suspect]
     Active Substance: CEFDINIR
  2. CEFACLOR CEFACLOR [Suspect]
     Active Substance: CEFACLOR

REACTIONS (1)
  - Intercepted drug dispensing error [None]
